FAERS Safety Report 20247082 (Version 1)
Quarter: 2021Q4

REPORT INFORMATION
  Report Type: Spontaneous
  Country: US (occurrence: None)
  Receive Date: 20211228
  Receipt Date: 20211228
  Transmission Date: 20220303
  Serious: Yes (Hospitalization)
  Sender: FDA-Public Use
  Company Number: None

PATIENT
  Sex: Female

DRUGS (1)
  1. OTEZLA [Suspect]
     Active Substance: APREMILAST
     Indication: Psoriatic arthropathy
     Dosage: FREQUENCY : TWICE A DAY;?
     Route: 048
     Dates: start: 202002

REACTIONS (5)
  - Sinus headache [None]
  - Blood pressure increased [None]
  - COVID-19 [None]
  - Depression [None]
  - Psoriasis [None]

NARRATIVE: CASE EVENT DATE: 20211101
